FAERS Safety Report 14964603 (Version 1)
Quarter: 2018Q2

REPORT INFORMATION
  Report Type: Report from Study
  Country: US (occurrence: US)
  Receive Date: 20180601
  Receipt Date: 20180601
  Transmission Date: 20180711
  Serious: Yes (Hospitalization)
  Sender: FDA-Public Use
  Company Number: US-JNJFOC-20180537282

PATIENT
  Sex: Male

DRUGS (10)
  1. IMBRUVICA [Suspect]
     Active Substance: IBRUTINIB
     Indication: MANTLE CELL LYMPHOMA
     Route: 048
     Dates: start: 20160225, end: 20180423
  2. MELATONIN [Concomitant]
     Active Substance: MELATONIN
  3. ELIQUIS [Concomitant]
     Active Substance: APIXABAN
  4. DULOXETINE. [Concomitant]
     Active Substance: DULOXETINE
  5. IMBRUVICA [Suspect]
     Active Substance: IBRUTINIB
     Indication: MANTLE CELL LYMPHOMA
     Route: 048
     Dates: start: 20180424
  6. AMIODARONE [Concomitant]
     Active Substance: AMIODARONE
  7. XANAX [Concomitant]
     Active Substance: ALPRAZOLAM
  8. METOPROLOL SUCCINATE. [Concomitant]
     Active Substance: METOPROLOL SUCCINATE
  9. LIPITOR [Concomitant]
     Active Substance: ATORVASTATIN CALCIUM
  10. ASPIRIN. [Concomitant]
     Active Substance: ASPIRIN

REACTIONS (1)
  - Internal haemorrhage [Unknown]
